FAERS Safety Report 6177820-9 (Version None)
Quarter: 2009Q2

REPORT INFORMATION
  Report Type: 
  Country: None (occurrence: None)
  Receive Date: 20090501
  Receipt Date: 20090501
  Transmission Date: 20091009
  Serious: Yes (Life-Threatening, Hospitalization)
  Sender: FDA-Public Use
  Company Number: None

PATIENT
  Age: 55 Year

DRUGS (1)
  1. NAPROXEN [Suspect]
     Indication: PAIN
     Dosage: 500 MG BID PO
     Route: 048
     Dates: start: 20090206, end: 20090216

REACTIONS (4)
  - HAEMATEMESIS [None]
  - MELAENA [None]
  - SINUS TACHYCARDIA [None]
  - UPPER GASTROINTESTINAL HAEMORRHAGE [None]
